FAERS Safety Report 4512925-7 (Version None)
Quarter: 2004Q4

REPORT INFORMATION
  Report Type: 
  Country: None (occurrence: None)
  Receive Date: 20041119
  Receipt Date: 20041119
  Transmission Date: 20050328
  Serious: Yes (Death)
  Sender: FDA-Public Use
  Company Number: None

PATIENT
  Age: 76 Year
  Sex: Female
  Weight: 69.4 kg

DRUGS (2)
  1. VINCRISTINE SULFATE [Suspect]
     Dosage: 0.7 MG INTRAVENOU
  2. ETOPOSIDE [Suspect]
     Dosage: 87 MG

REACTIONS (12)
  - ANURIA [None]
  - BLOOD CREATININE INCREASED [None]
  - ENTEROCOCCAL INFECTION [None]
  - EXTRAVASATION [None]
  - HAEMOPTYSIS [None]
  - HYPOALBUMINAEMIA [None]
  - NEUTROPENIA [None]
  - PNEUMONIA KLEBSIELLA [None]
  - SEPTIC SHOCK [None]
  - STAPHYLOCOCCAL INFECTION [None]
  - STRONGYLOIDIASIS [None]
  - THROMBOCYTOPENIA [None]
